FAERS Safety Report 4280686-5 (Version None)
Quarter: 2004Q1

REPORT INFORMATION
  Report Type: 
  Country: None (occurrence: None)
  Receive Date: 20040127
  Receipt Date: 20040120
  Transmission Date: 20041129
  Serious: Yes (Hospitalization)
  Sender: FDA-Public Use
  Company Number: 04P-163-0247712-00

PATIENT
  Age: 45 Year
  Sex: Male

DRUGS (3)
  1. DEPAKOTE ER [Suspect]
     Indication: MENTAL DISORDER
     Dosage: 500 MG, 2 IN 1 D, ORAL;  500 MG, 3 IN 1 D, ORAL
     Route: 048
     Dates: start: 20020101
  2. BUSPIRONE HCL [Concomitant]
  3. FAMOTIDINE [Concomitant]

REACTIONS (3)
  - CONDITION AGGRAVATED [None]
  - MENTAL DISORDER [None]
  - RASH MACULO-PAPULAR [None]
